FAERS Safety Report 6305178-0 (Version None)
Quarter: 2009Q3

REPORT INFORMATION
  Report Type: 
  Country: None (occurrence: None)
  Receive Date: 20090811
  Receipt Date: 20090807
  Transmission Date: 20100115
  Serious: Yes (Hospitalization)
  Sender: FDA-Public Use
  Company Number: US-B.I. PHARMACEUTICALS,INC./RIDGEFIELD-2009-BP-09411BP

PATIENT
  Sex: Male

DRUGS (2)
  1. COMBIVENT [Suspect]
     Indication: DYSPNOEA
     Dosage: 8 PUF
     Route: 055
  2. COMBIVENT [Suspect]
     Indication: MYASTHENIA GRAVIS

REACTIONS (1)
  - MYASTHENIA GRAVIS CRISIS [None]
